FAERS Safety Report 20004476 (Version 1)
Quarter: 2021Q4

REPORT INFORMATION
  Report Type: Spontaneous
  Country: FR (occurrence: FR)
  Receive Date: 20211028
  Receipt Date: 20211028
  Transmission Date: 20220303
  Serious: Yes (Other)
  Sender: FDA-Public Use
  Company Number: FR-ABBVIE-21K-056-4138759-00

PATIENT
  Sex: Female

DRUGS (2)
  1. DEPAKOTE [Suspect]
     Active Substance: DIVALPROEX SODIUM
     Indication: Product used for unknown indication
     Dosage: (ONE TABLET IN  THE MORNING AND ONE TABLET AT NOON);
     Route: 065
     Dates: start: 20190719
  2. VALPROMIDE [Suspect]
     Active Substance: VALPROMIDE
     Indication: Product used for unknown indication
     Dosage: (ONE TABLET IN THE MORNING, ONE TABLET AT NOON AND ONE TABLET IN THE EVENING)
     Route: 065

REACTIONS (4)
  - Choking [Unknown]
  - Joint swelling [Unknown]
  - Oropharyngeal discomfort [Unknown]
  - Headache [Unknown]
